FAERS Safety Report 5140209-5 (Version None)
Quarter: 2006Q4

REPORT INFORMATION
  Report Type: 
  Country: None (occurrence: None)
  Receive Date: 20061026
  Receipt Date: 20061026
  Transmission Date: 20070319
  Serious: Yes (Life-Threatening, Disabling, Other)
  Sender: FDA-Public Use
  Company Number: None

PATIENT
  Age: 64 Year
  Sex: Female
  Weight: 84.8226 kg

DRUGS (7)
  1. GEODON [Suspect]
     Indication: SCHIZOPHRENIA
     Dosage: EACH MONTH
  2. CLONAZEPAM [Suspect]
     Indication: BIPOLAR DISORDER
     Dosage: EACH MONTH
  3. ZYPREXA [Concomitant]
  4. DEPAKOTE [Concomitant]
  5. CLONAZEPAM [Concomitant]
  6. GODON [Concomitant]
  7. DIOVAN HCT [Concomitant]

REACTIONS (8)
  - BLINDNESS [None]
  - CATARACT [None]
  - CEREBROVASCULAR ACCIDENT [None]
  - EYE DISORDER [None]
  - FALL [None]
  - GLAUCOMA [None]
  - PAIN [None]
  - VISION BLURRED [None]
